FAERS Safety Report 10678100 (Version 2)
Quarter: 2015Q1

REPORT INFORMATION
  Report Type: Report from Study
  Country: CN (occurrence: None)
  Receive Date: 20141223
  Receipt Date: 20150212
  Transmission Date: 20150720
  Serious: Yes (Other)
  Sender: FDA-Public Use
  Company Number: 8002676

PATIENT
  Age: 38 Year
  Sex: Male

DRUGS (2)
  1. EUTHYROX 50 MCG (LEVOTHYROXINE SODIUM) (TABLET) (LEVOTHYROXINE SODIUM), 173016 [Suspect]
     Active Substance: LEVOTHYROXINE SODIUM
     Indication: THYROIDECTOMY
     Route: 048
     Dates: start: 20140622, end: 201408
  2. IODINE (131 I) (IODINE (131 I) (IODINE (131 I )) [Concomitant]
     Active Substance: IODINE I-131

REACTIONS (4)
  - Oedema [None]
  - Blood thyroid stimulating hormone increased [None]
  - Asthenia [None]
  - Drug ineffective [None]

NARRATIVE: CASE EVENT DATE: 2014
